FAERS Safety Report 6571753-1 (Version None)
Quarter: 2010Q1

REPORT INFORMATION
  Report Type: 
  Country: None (occurrence: None)
  Receive Date: 20100205
  Receipt Date: 20100125
  Transmission Date: 20100710
  Serious: Yes (Hospitalization)
  Sender: FDA-Public Use
  Company Number: US-JNJFOC-20100109837

PATIENT
  Sex: Female
  Weight: 90.72 kg

DRUGS (8)
  1. REMICADE [Suspect]
     Indication: COLITIS ULCERATIVE
     Route: 042
     Dates: start: 20030101, end: 20031101
  2. REMICADE [Suspect]
     Indication: RHEUMATOID ARTHRITIS
     Route: 042
     Dates: start: 20030101, end: 20031101
  3. PREDNISONE [Concomitant]
     Indication: COLITIS ULCERATIVE
  4. PREDNISONE [Concomitant]
     Indication: RHEUMATOID ARTHRITIS
  5. CIPRO [Concomitant]
  6. CARISOPRODOL [Concomitant]
  7. RANITIDINE [Concomitant]
  8. URSO 250 [Concomitant]

REACTIONS (10)
  - BLINDNESS [None]
  - COMA [None]
  - CONVULSION [None]
  - DRUG INEFFECTIVE [None]
  - FURUNCLE [None]
  - HYPERTENSION [None]
  - MALAISE [None]
  - MULTI-ORGAN FAILURE [None]
  - RASH MACULAR [None]
  - SKIN HAEMORRHAGE [None]
